FAERS Safety Report 4325781-7 (Version None)
Quarter: 2004Q1

REPORT INFORMATION
  Report Type: 
  Country: None (occurrence: None)
  Receive Date: 20040324
  Receipt Date: 20040309
  Transmission Date: 20041129
  Serious: Yes (Death, Hospitalization)
  Sender: FDA-Public Use
  Company Number: JP_040202581

PATIENT
  Age: 43 Year
  Sex: Male

DRUGS (2)
  1. GEMZAR [Suspect]
     Indication: PANCREATIC CARCINOMA
     Dosage: 800 MG/M2
     Dates: start: 20020801
  2. RADIOTHERAPY [Concomitant]

REACTIONS (11)
  - CANDIDIASIS [None]
  - CARDIAC VALVE VEGETATION [None]
  - DRUG EFFECT DECREASED [None]
  - DRUG INEFFECTIVE [None]
  - ENDOCARDITIS [None]
  - ENDOCARDITIS CANDIDA [None]
  - GENERAL PHYSICAL HEALTH DETERIORATION [None]
  - METASTASES TO LYMPH NODES [None]
  - MYOCARDIAC ABSCESS [None]
  - PYREXIA [None]
  - STAPHYLOCOCCAL INFECTION [None]
